FAERS Safety Report 9190477 (Version 2)
Quarter: 2013Q1

REPORT INFORMATION
  Report Type: Spontaneous
  Country: PT (occurrence: PT)
  Receive Date: 20130326
  Receipt Date: 20130326
  Transmission Date: 20140127
  Serious: Yes (Life-Threatening, Hospitalization)
  Sender: FDA-Public Use
  Company Number: PT-BAYER-2013-036305

PATIENT
  Age: 48 Year
  Sex: Male
  Weight: 89 kg

DRUGS (1)
  1. AVELOX [Suspect]
     Indication: PERITONSILLAR ABSCESS
     Dosage: 400 MG, QD
     Route: 048
     Dates: start: 20130222, end: 20130223

REACTIONS (6)
  - Rash macular [Recovering/Resolving]
  - Local swelling [Recovering/Resolving]
  - Eye swelling [Recovering/Resolving]
  - Swelling face [Recovering/Resolving]
  - Aphthous stomatitis [Recovering/Resolving]
  - Diarrhoea [Recovering/Resolving]
